FAERS Safety Report 12553056 (Version 2)
Quarter: 2016Q3

REPORT INFORMATION
  Report Type: Spontaneous
  Country: BR (occurrence: BR)
  Receive Date: 20160713
  Receipt Date: 20160824
  Transmission Date: 20161109
  Serious: Yes (Other)
  Sender: FDA-Public Use
  Company Number: BR-PFIZER INC-2016313161

PATIENT
  Age: 73 Year
  Sex: Female

DRUGS (1)
  1. SUTENT [Suspect]
     Active Substance: SUNITINIB MALATE
     Dosage: 50 MG, CYCLIC (1 CAPSULE HARD FOR 28 DAYS EACH 4 WEEKS)
     Route: 048
     Dates: start: 20160620

REACTIONS (10)
  - Gastrointestinal disorder [Not Recovered/Not Resolved]
  - Pallor [Unknown]
  - Retching [Unknown]
  - Malaise [Unknown]
  - Syncope [Unknown]
  - Diabetes mellitus [Unknown]
  - Feeding disorder [Unknown]
  - Fall [Unknown]
  - Ageusia [Unknown]
  - Feeling cold [Unknown]

NARRATIVE: CASE EVENT DATE: 2016
